FAERS Safety Report 9240333 (Version 1)
Quarter: 2013Q1

REPORT INFORMATION
  Report Type: Spontaneous
  Country: US (occurrence: None)
  Receive Date: 20121102
  Receipt Date: 20121102
  Transmission Date: 20140127
  Serious: Yes (Hospitalization)
  Sender: FDA-Public Use
  Company Number: 130637

PATIENT
  Age: 51 Year
  Sex: Male
  Weight: 79 kg

DRUGS (1)
  1. LEUCOVORIN CALCIUM [Suspect]
     Dosage: 400 MG /M2 DAY ONE EVERY 14 DAYS
     Dates: start: 20120104

REACTIONS (1)
  - Neutropenia [None]
